FAERS Safety Report 6341234-9 (Version None)
Quarter: 2009Q3

REPORT INFORMATION
  Report Type: 
  Country: None (occurrence: None)
  Receive Date: 20090904
  Receipt Date: 20090630
  Transmission Date: 20100115
  Serious: No
  Sender: FDA-Public Use
  Company Number: A0794672A

PATIENT
  Age: 51 Year
  Sex: Female

DRUGS (9)
  1. REQUIP [Suspect]
     Indication: RESTLESS LEGS SYNDROME
     Dosage: 2MG PER DAY
     Route: 048
  2. ALPRAZOLAM [Concomitant]
  3. CITALOPRAM HYDROBROMIDE [Concomitant]
  4. IBUPROFEN [Concomitant]
     Indication: PAIN
  5. ACETAMINOPHEN [Concomitant]
  6. CODEINUM [Concomitant]
  7. LEXAPRO [Concomitant]
  8. NEXIUM [Concomitant]
  9. MICARDIS [Concomitant]

REACTIONS (7)
  - BALANCE DISORDER [None]
  - DIPLOPIA [None]
  - DIZZINESS [None]
  - DRUG INEFFECTIVE [None]
  - EYE PAIN [None]
  - PHOTOPHOBIA [None]
  - VISION BLURRED [None]
